FAERS Safety Report 6637718-6 (Version None)
Quarter: 2010Q1

REPORT INFORMATION
  Report Type: 
  Country: None (occurrence: None)
  Receive Date: 20100315
  Receipt Date: 20100315
  Transmission Date: 20100710
  Serious: Yes (Life-Threatening, Disabling)
  Sender: FDA-Public Use
  Company Number: None

PATIENT
  Age: 56 Year
  Sex: Male
  Weight: 83.4619 kg

DRUGS (2)
  1. VERAPAMIL [Suspect]
     Dosage: 2 DAYS OF USEAGE ONLY.
     Dates: start: 20100308, end: 20100313
  2. NATURAL CALM [Concomitant]

REACTIONS (23)
  - ABDOMINAL DISTENSION [None]
  - BLOOD PRESSURE INCREASED [None]
  - CHEST PAIN [None]
  - DEHYDRATION [None]
  - DIZZINESS [None]
  - DYSPEPSIA [None]
  - DYSPHAGIA [None]
  - ERUCTATION [None]
  - ERYTHEMA [None]
  - FEELING JITTERY [None]
  - FLATULENCE [None]
  - HEADACHE [None]
  - JOINT SWELLING [None]
  - MOVEMENT DISORDER [None]
  - MUSCLE SPASMS [None]
  - OEDEMA PERIPHERAL [None]
  - PALPITATIONS [None]
  - PERIPHERAL COLDNESS [None]
  - PRURITUS [None]
  - THROAT TIGHTNESS [None]
  - TINNITUS [None]
  - URTICARIA [None]
  - VOMITING [None]
